FAERS Safety Report 7272441-9 (Version None)
Quarter: 2011Q1

REPORT INFORMATION
  Report Type: 
  Country: None (occurrence: None)
  Receive Date: 20110127
  Receipt Date: 20110112
  Transmission Date: 20110831
  Serious: Yes (Hospitalization, Other)
  Sender: FDA-Public Use
  Company Number: TCI2011A00182

PATIENT
  Age: 71 Year
  Sex: Female

DRUGS (2)
  1. LANSOPRAZOLE [Suspect]
     Indication: GASTRITIS
     Dosage: PER ORAL
     Route: 048
     Dates: start: 20080716, end: 20081116
  2. LANSOPRAZOLE [Suspect]
     Indication: REFLUX OESOPHAGITIS
     Dosage: PER ORAL
     Route: 048
     Dates: start: 20080716, end: 20081116

REACTIONS (6)
  - HYPOALBUMINAEMIA [None]
  - HYPOPROTEINAEMIA [None]
  - COLITIS COLLAGENOUS [None]
  - WHITE BLOOD CELL COUNT INCREASED [None]
  - ACUTE ABDOMEN [None]
  - LARGE INTESTINAL ULCER [None]
